FAERS Safety Report 16613683 (Version 1)
Quarter: 2019Q3

REPORT INFORMATION
  Report Type: Spontaneous
  Country: JP (occurrence: JP)
  Receive Date: 20190723
  Receipt Date: 20190723
  Transmission Date: 20191004
  Serious: Yes (Hospitalization, Other)
  Sender: FDA-Public Use
  Company Number: JP-SAKK-2019SA193639AA

PATIENT
  Age: 63 Year
  Sex: Female
  Weight: 59 kg

DRUGS (4)
  1. EMPAGLIFLOZIN [Concomitant]
     Active Substance: EMPAGLIFLOZIN
     Indication: TYPE 2 DIABETES MELLITUS
     Dosage: 10 MG, QD
     Route: 065
  2. VILDAGLIPTIN [Concomitant]
     Active Substance: VILDAGLIPTIN
     Indication: TYPE 2 DIABETES MELLITUS
     Dosage: 2 DF, QD
     Route: 065
  3. METFORMIN HYDROCHLORIDE. [Suspect]
     Active Substance: METFORMIN HYDROCHLORIDE
     Indication: TYPE 2 DIABETES MELLITUS
     Dosage: 1250 MG, QD
     Route: 065
  4. TAXOTERE [Suspect]
     Active Substance: DOCETAXEL
     Indication: BREAST CANCER
     Route: 041

REACTIONS (8)
  - Dyspnoea [Recovering/Resolving]
  - Prerenal failure [Recovering/Resolving]
  - Inflammation [Recovering/Resolving]
  - Hypocapnia [Recovering/Resolving]
  - Blood pressure decreased [Recovering/Resolving]
  - Lactic acidosis [Recovering/Resolving]
  - Enteritis infectious [Recovering/Resolving]
  - Diarrhoea [Recovering/Resolving]
